FAERS Safety Report 14929265 (Version 1)
Quarter: 2018Q2

REPORT INFORMATION
  Report Type: Spontaneous
  Country: JP (occurrence: ZA)
  Receive Date: 20180523
  Receipt Date: 20180523
  Transmission Date: 20180711
  Serious: Yes (Life-Threatening, Hospitalization)
  Sender: FDA-Public Use
  Company Number: ZA-STI PHARMA LLC-2048317

PATIENT
  Age: 41 Year
  Sex: Female
  Weight: 40 kg

DRUGS (11)
  1. ETHAMBUTOL HYDROCHLORIDE. [Suspect]
     Active Substance: ETHAMBUTOL HYDROCHLORIDE
     Dates: start: 20170411
  2. BEDAQUILINE [Suspect]
     Active Substance: BEDAQUILINE
     Dates: start: 20170411
  3. ISONIAZID. [Suspect]
     Active Substance: ISONIAZID
     Route: 048
     Dates: start: 20170411
  4. PARA-AMINOSALICYLIC ACID [Suspect]
     Active Substance: AMINOSALICYLIC ACID
     Dates: start: 20170323
  5. PYRIDOXINE HYDROCHLORIDE. [Suspect]
     Active Substance: PYRIDOXINE HYDROCHLORIDE
     Dates: start: 20170323
  6. PYRAZINAMIDE. [Suspect]
     Active Substance: PYRAZINAMIDE
     Dates: start: 20170323
  7. LEVOFLOXACIN. [Suspect]
     Active Substance: LEVOFLOXACIN
     Dates: start: 20170323
  8. TERIZIDONE [Suspect]
     Active Substance: TERIZIDONE
     Dates: start: 20170323
  9. LINEZOLID. [Suspect]
     Active Substance: LINEZOLID
     Dates: start: 20170323
  10. DELAMINID [Suspect]
     Active Substance: DELAMANID
     Route: 048
     Dates: end: 20170420
  11. CLOFAZIMINE [Suspect]
     Active Substance: CLOFAZIMINE
     Dates: start: 20170323

REACTIONS (3)
  - Meningitis tuberculous [Recovered/Resolved]
  - Pneumothorax spontaneous [Recovering/Resolving]
  - Abdominal pain upper [Unknown]

NARRATIVE: CASE EVENT DATE: 20170601
